FAERS Safety Report 5067104-4 (Version None)
Quarter: 2006Q3

REPORT INFORMATION
  Report Type: 
  Country: None (occurrence: None)
  Receive Date: 20060801
  Receipt Date: 20060516
  Transmission Date: 20061208
  Serious: Yes (Death, Other)
  Sender: FDA-Public Use
  Company Number: JP-BRISTOL-MYERS SQUIBB COMPANY-13379490

PATIENT
  Age: 58 Year
  Sex: Male

DRUGS (8)
  1. TAXOL [Suspect]
     Indication: LUNG NEOPLASM MALIGNANT
     Route: 041
     Dates: start: 20060331, end: 20060331
  2. PARAPLATIN [Suspect]
     Indication: LUNG NEOPLASM MALIGNANT
     Route: 041
     Dates: start: 20060331, end: 20060331
  3. GASTER [Concomitant]
     Route: 042
     Dates: start: 20060405, end: 20060406
  4. GASTER [Concomitant]
     Route: 048
     Dates: start: 20060311, end: 20060404
  5. ORGARAN [Concomitant]
     Route: 042
     Dates: start: 20060313, end: 20060406
  6. PREDONINE [Concomitant]
     Route: 042
     Dates: start: 20060313, end: 20060406
  7. AMINOFLUID [Concomitant]
     Route: 042
     Dates: start: 20060311, end: 20060325
  8. GASTER [Concomitant]
     Route: 048
     Dates: start: 20060311, end: 20060404

REACTIONS (5)
  - DISSEMINATED INTRAVASCULAR COAGULATION [None]
  - GASTRITIS [None]
  - HAEMOLYTIC URAEMIC SYNDROME [None]
  - MALIGNANT NEOPLASM PROGRESSION [None]
  - WHITE BLOOD CELL COUNT DECREASED [None]
